FAERS Safety Report 17456412 (Version 1)
Quarter: 2020Q1

REPORT INFORMATION
  Report Type: Spontaneous
  Country: US (occurrence: US)
  Receive Date: 20200225
  Receipt Date: 20200225
  Transmission Date: 20200409
  Serious: Yes (Hospitalization)
  Sender: FDA-Public Use
  Company Number: None

PATIENT
  Sex: Female

DRUGS (13)
  1. OMEPRAZOLE. [Concomitant]
     Active Substance: OMEPRAZOLE
  2. ENBREL [Suspect]
     Active Substance: ETANERCEPT
     Dosage: ?          OTHER FREQUENCY:WEEKLY;?
     Route: 058
     Dates: start: 20180719
  3. AMLODIPINE [Concomitant]
     Active Substance: AMLODIPINE BESYLATE
  4. HYDRALAZINE [Concomitant]
     Active Substance: HYDRALAZINE HYDROCHLORIDE
  5. ARIPIPRAZOLE. [Concomitant]
     Active Substance: ARIPIPRAZOLE
  6. PREDNISONE. [Concomitant]
     Active Substance: PREDNISONE
  7. FUROSEMIDE. [Concomitant]
     Active Substance: FUROSEMIDE
  8. GABAPENTIN. [Concomitant]
     Active Substance: GABAPENTIN
  9. DULOXETINE. [Concomitant]
     Active Substance: DULOXETINE
  10. CARVEDILOL. [Concomitant]
     Active Substance: CARVEDILOL
  11. LEFLUNOMIDE. [Concomitant]
     Active Substance: LEFLUNOMIDE
  12. LEVOTHYROXIN [Concomitant]
     Active Substance: LEVOTHYROXINE
  13. NORTRIPTYLIN [Concomitant]
     Active Substance: NORTRIPTYLINE

REACTIONS (2)
  - Surgery [None]
  - Therapy cessation [None]
